FAERS Safety Report 20364853 (Version 7)
Quarter: 2022Q3

REPORT INFORMATION
  Report Type: Report from Study
  Country: US (occurrence: US)
  Receive Date: 20220122
  Receipt Date: 20220810
  Transmission Date: 20221027
  Serious: Yes (Other)
  Sender: FDA-Public Use
  Company Number: US-NOVARTISPH-NVSC2022US006344

PATIENT
  Age: 60 Year
  Sex: Female

DRUGS (6)
  1. ENTRESTO [Suspect]
     Active Substance: SACUBITRIL\VALSARTAN
     Indication: Product used for unknown indication
     Dosage: 1 DF, BID (49/51 MG)
     Route: 048
  2. ENTRESTO [Suspect]
     Active Substance: SACUBITRIL\VALSARTAN
     Dosage: 1 DOSAGE FORM, BID (97/103 MG)
     Route: 048
  3. ENTRESTO [Suspect]
     Active Substance: SACUBITRIL\VALSARTAN
     Dosage: 1 DOSAGE FORM, BID (97/103 MG)
     Route: 048
  4. FUROSEMIDE [Suspect]
     Active Substance: FUROSEMIDE
     Indication: Product used for unknown indication
     Route: 065
  5. CARVEDILOL [Suspect]
     Active Substance: CARVEDILOL
     Indication: Product used for unknown indication
     Route: 065
  6. SINGULAIR [Concomitant]
     Active Substance: MONTELUKAST SODIUM
     Indication: Product used for unknown indication
     Dosage: UNK
     Route: 065

REACTIONS (31)
  - Pulmonary congestion [Not Recovered/Not Resolved]
  - Heart rate increased [Unknown]
  - Atrial fibrillation [Unknown]
  - Cardiac flutter [Unknown]
  - COVID-19 [Unknown]
  - Throat clearing [Unknown]
  - Cough [Not Recovered/Not Resolved]
  - Rhinorrhoea [Unknown]
  - Nasal congestion [Not Recovered/Not Resolved]
  - Sneezing [Not Recovered/Not Resolved]
  - Varicose vein [Unknown]
  - Pain [Unknown]
  - Feeling abnormal [Unknown]
  - Paranoia [Unknown]
  - Arthralgia [Unknown]
  - Insomnia [Unknown]
  - Limb discomfort [Unknown]
  - Oxygen saturation decreased [Unknown]
  - Heart rate abnormal [Unknown]
  - Decreased activity [Unknown]
  - Malaise [Unknown]
  - Stress [Unknown]
  - Palpitations [Unknown]
  - Balance disorder [Unknown]
  - Sciatica [Unknown]
  - Weight decreased [Unknown]
  - Pain in extremity [Recovered/Resolved]
  - Weight increased [Unknown]
  - Fatigue [Unknown]
  - Sleep study abnormal [Unknown]
  - Drug ineffective [Unknown]

NARRATIVE: CASE EVENT DATE: 20211231
